FAERS Safety Report 9523260 (Version 1)
Quarter: 2013Q3

REPORT INFORMATION
  Report Type: Spontaneous
  Country: FR (occurrence: FR)
  Receive Date: 20130913
  Receipt Date: 20130913
  Transmission Date: 20140515
  Serious: Yes (Hospitalization)
  Sender: FDA-Public Use
  Company Number: FR-PFIZER INC-2013261834

PATIENT
  Age: 87 Year
  Sex: Male

DRUGS (8)
  1. EFFEXOR [Suspect]
     Indication: FAILURE TO THRIVE
     Dosage: 37.5 MG, 1X/DAY
     Route: 048
     Dates: start: 201201, end: 201209
  2. HALDOL [Suspect]
     Indication: FAILURE TO THRIVE
     Dosage: 8 GTT, 1X/DAY
     Route: 048
     Dates: start: 201201, end: 20120207
  3. AMLOR [Concomitant]
     Dosage: 5 UNK, UNK
  4. LAMALINE [Concomitant]
  5. PREVISCAN [Concomitant]
  6. INSULATARD [Concomitant]
  7. KEPPRA [Concomitant]
  8. SIMVASTATIN [Concomitant]
     Dosage: 20 UNK, UNK

REACTIONS (3)
  - Off label use [Recovered/Resolved]
  - Extrapyramidal disorder [Recovered/Resolved]
  - Parkinsonism [Recovered/Resolved]
